FAERS Safety Report 6418750-4 (Version None)
Quarter: 2009Q4

REPORT INFORMATION
  Report Type: 
  Country: None (occurrence: None)
  Receive Date: 20091026
  Receipt Date: 20091014
  Transmission Date: 20100525
  Serious: Yes (Other)
  Sender: FDA-Public Use
  Company Number: 2009AC0000019

PATIENT
  Age: 38 Year
  Sex: Female

DRUGS (18)
  1. DIGOXIN [Suspect]
     Indication: HEART RATE INCREASED
     Dosage: 0.25 MG;1X
  2. TOPROL-XL [Concomitant]
  3. LISINOPRIL [Concomitant]
  4. ACEBUTOLOL [Concomitant]
  5. METRONIDAZOLE [Concomitant]
  6. DIFLUCAN [Concomitant]
  7. VEETIDS [Concomitant]
  8. CEPHALEXIN [Concomitant]
  9. ATENOLOL [Concomitant]
  10. CIPROFLOXACIN [Concomitant]
  11. MACRODANTIN [Concomitant]
  12. FLUCONAZOLE [Concomitant]
  13. DIAZEPAM [Concomitant]
  14. DICLOFENAC [Concomitant]
  15. TERCONAZOLE [Concomitant]
  16. AMRIX [Concomitant]
  17. FISH OIL [Concomitant]
  18. MULTI-VITAMIN [Concomitant]

REACTIONS (16)
  - ABDOMINAL PAIN [None]
  - CHEST PAIN [None]
  - COUGH [None]
  - DYSPNOEA [None]
  - EMOTIONAL DISTRESS [None]
  - FALL [None]
  - FLANK PAIN [None]
  - HAEMATURIA [None]
  - INJURY [None]
  - NEPHROLITHIASIS [None]
  - PAIN IN EXTREMITY [None]
  - PROCTALGIA [None]
  - PROTEIN URINE PRESENT [None]
  - RECTAL HAEMORRHAGE [None]
  - URINARY TRACT INFECTION [None]
  - WRIST FRACTURE [None]
